FAERS Safety Report 6056735-0 (Version None)
Quarter: 2009Q1

REPORT INFORMATION
  Report Type: 
  Country: None (occurrence: None)
  Receive Date: 20090126
  Receipt Date: 20090126
  Transmission Date: 20090719
  Serious: Yes (Disabling, Other)
  Sender: FDA-Public Use
  Company Number: None

PATIENT
  Age: 40 Year
  Sex: Female
  Weight: 70.3075 kg

DRUGS (1)
  1. MIRENA [Suspect]
     Indication: CONTRACEPTION
     Dates: start: 20071001, end: 20090121

REACTIONS (18)
  - ABDOMINAL DISTENSION [None]
  - ALOPECIA [None]
  - AMNESIA [None]
  - APATHY [None]
  - BREAST SWELLING [None]
  - BREAST TENDERNESS [None]
  - DEPRESSION [None]
  - DYSPAREUNIA [None]
  - FATIGUE [None]
  - FEELING ABNORMAL [None]
  - IRRITABILITY [None]
  - LOSS OF LIBIDO [None]
  - MIGRAINE [None]
  - MUSCLE SPASMS [None]
  - PREMATURE AGEING [None]
  - SECRETION DISCHARGE [None]
  - WEIGHT INCREASED [None]
  - WEIGHT LOSS POOR [None]
